FAERS Safety Report 15293542 (Version 1)
Quarter: 2018Q3

REPORT INFORMATION
  Report Type: Report from Study
  Country: JP (occurrence: JP)
  Receive Date: 20180820
  Receipt Date: 20180820
  Transmission Date: 20181010
  Serious: Yes (Other)
  Sender: FDA-Public Use
  Company Number: JP-TEVA-2018-JP-945725

PATIENT
  Age: 45 Year
  Sex: Male

DRUGS (3)
  1. WARFARIN [Suspect]
     Active Substance: WARFARIN
     Dosage: 1 MILLIGRAM DAILY;
     Route: 065
  2. WARFARIN [Suspect]
     Active Substance: WARFARIN
     Indication: CARDIAC FAILURE
     Dosage: 1.5 MILLIGRAM DAILY;
     Route: 065
  3. TRANILAST [Interacting]
     Active Substance: TRANILAST
     Indication: BECKER^S MUSCULAR DYSTROPHY
     Dosage: 300 MILLIGRAM DAILY; FOR 3 MONTHS
     Route: 065

REACTIONS (5)
  - Drug interaction [Recovering/Resolving]
  - Heart rate increased [Not Recovered/Not Resolved]
  - International normalised ratio increased [Recovering/Resolving]
  - Ventricular extrasystoles [Not Recovered/Not Resolved]
  - Condition aggravated [Not Recovered/Not Resolved]
